FAERS Safety Report 7470685-4 (Version None)
Quarter: 2011Q2

REPORT INFORMATION
  Report Type: 
  Country: None (occurrence: None)
  Receive Date: 20110510
  Receipt Date: 20110405
  Transmission Date: 20111010
  Serious: No
  Sender: FDA-Public Use
  Company Number: US-BAYER-2011-030470

PATIENT
  Age: 64 Year
  Sex: Female
  Weight: 83.9 kg

DRUGS (4)
  1. ALEVE (CAPLET) [Suspect]
     Indication: ARTHRITIS
     Dosage: 440 MG, BID, BOTTLE COUNT 200S
     Route: 048
     Dates: start: 20110402
  2. ONE A DAY [Concomitant]
  3. FISH OIL [Concomitant]
  4. TRIFLEX [Concomitant]

REACTIONS (1)
  - NO ADVERSE EVENT [None]
